FAERS Safety Report 9140461 (Version 2)
Quarter: 2013Q2

REPORT INFORMATION
  Report Type: Spontaneous
  Country: US (occurrence: US)
  Receive Date: 20130305
  Receipt Date: 20130514
  Transmission Date: 20140414
  Serious: Yes (Hospitalization)
  Sender: FDA-Public Use
  Company Number: US-BAYER-2013-026978

PATIENT
  Age: 20 Year
  Sex: Female
  Weight: 63.49 kg

DRUGS (7)
  1. YAZ [Suspect]
     Indication: CONTRACEPTION
     Dosage: UNK
     Dates: start: 200702, end: 20110518
  2. YAZ [Suspect]
     Indication: PREMENSTRUAL DYSPHORIC DISORDER
     Dosage: UNK
     Dates: start: 201103
  3. YAZ [Suspect]
     Indication: PREMENSTRUAL SYNDROME
  4. HYDROCODONE [Concomitant]
  5. ZOFRAN [Concomitant]
  6. DILAUDID [Concomitant]
     Indication: PAIN
  7. LORTAB [Concomitant]

REACTIONS (8)
  - Pulmonary embolism [None]
  - Chest pain [None]
  - General physical health deterioration [None]
  - Emotional distress [None]
  - Anxiety [None]
  - Pain [None]
  - Injury [None]
  - Pain [None]
